FAERS Safety Report 5819738-4 (Version None)
Quarter: 2008Q3

REPORT INFORMATION
  Report Type: 
  Country: None (occurrence: None)
  Receive Date: 20080723
  Receipt Date: 20080704
  Transmission Date: 20090109
  Serious: Yes (Other)
  Sender: FDA-Public Use
  Company Number: US-PFIZER INC-2008057255

PATIENT
  Sex: Female

DRUGS (4)
  1. CHANTIX [Suspect]
     Indication: SMOKING CESSATION THERAPY
  2. CLONAZEPAM [Concomitant]
     Indication: CONVULSION
     Dosage: DAILY DOSE:700MG
  3. PHENOBARBITAL TAB [Concomitant]
     Indication: CONVULSION
     Dosage: DAILY DOSE:120MG
  4. DIAZEPAM [Concomitant]
     Indication: CONVULSION
     Dosage: DAILY DOSE:10MG

REACTIONS (9)
  - AGGRESSION [None]
  - ANXIETY [None]
  - CONVULSION [None]
  - DYSPNOEA [None]
  - FRACTURE [None]
  - IRRITABILITY [None]
  - OEDEMA PERIPHERAL [None]
  - RESTLESSNESS [None]
  - SWELLING FACE [None]
